FAERS Safety Report 7670411-X (Version None)
Quarter: 2011Q3

REPORT INFORMATION
  Report Type: 
  Country: None (occurrence: None)
  Receive Date: 20110809
  Receipt Date: 20110728
  Transmission Date: 20111222
  Serious: No
  Sender: FDA-Public Use
  Company Number: US-BIOGENIDEC-2011BI028409

PATIENT
  Age: 49 Year
  Sex: Female

DRUGS (2)
  1. TYSABRI [Suspect]
     Indication: MULTIPLE SCLEROSIS
     Route: 042
     Dates: start: 20101005
  2. TYSABRI [Suspect]
     Route: 042
     Dates: start: 20071105, end: 20090727

REACTIONS (5)
  - TOOTH INFECTION [None]
  - PROCEDURAL PAIN [None]
  - DEVICE FAILURE [None]
  - PHARYNGITIS STREPTOCOCCAL [None]
  - MULTIPLE SCLEROSIS RELAPSE [None]
